FAERS Safety Report 23275914 (Version 1)
Quarter: 2023Q4

REPORT INFORMATION
  Report Type: Spontaneous
  Country: FR (occurrence: FR)
  Receive Date: 20231208
  Receipt Date: 20231208
  Transmission Date: 20240109
  Serious: Yes (Hospitalization)
  Sender: FDA-Public Use
  Company Number: None

PATIENT
  Age: 84 Year
  Sex: Male
  Weight: 60 kg

DRUGS (10)
  1. DOCETAXEL [Suspect]
     Active Substance: DOCETAXEL\DOCETAXEL ANHYDROUS
     Indication: Prostate cancer
     Dates: start: 20221129, end: 20221129
  2. ACETAMINOPHEN [Concomitant]
     Active Substance: ACETAMINOPHEN
  3. METOPROLOL [Concomitant]
     Active Substance: METOPROLOL
  4. LOVENOX [Concomitant]
     Active Substance: ENOXAPARIN SODIUM
  5. ALFUZOSIN [Concomitant]
     Active Substance: ALFUZOSIN
  6. POTASSIUM [Concomitant]
     Active Substance: POTASSIUM
  7. MOVICOL [Concomitant]
     Active Substance: POLYETHYLENE GLYCOL 3350\POTASSIUM CHLORIDE\SODIUM BICARBONATE\SODIUM CHLORIDE
  8. EZETIMIBE [Concomitant]
     Active Substance: EZETIMIBE
  9. SKENAN [Concomitant]
     Active Substance: MORPHINE SULFATE
  10. AMIODARONE [Concomitant]
     Active Substance: AMIODARONE

REACTIONS (5)
  - Vomiting [Recovered/Resolved]
  - Depressed level of consciousness [Recovered/Resolved]
  - Nausea [Recovered/Resolved]
  - Decreased appetite [Recovered/Resolved]
  - Weight decreased [Not Recovered/Not Resolved]

NARRATIVE: CASE EVENT DATE: 20221129
